FAERS Safety Report 6515541-0 (Version None)
Quarter: 2009Q4

REPORT INFORMATION
  Report Type: 
  Country: None (occurrence: None)
  Receive Date: 20091223
  Receipt Date: 20091216
  Transmission Date: 20100525
  Serious: Yes (Other)
  Sender: FDA-Public Use
  Company Number: US-ROCHE-675307

PATIENT
  Age: 3 Year
  Sex: Female
  Weight: 11.8 kg

DRUGS (1)
  1. TAMIFLU [Suspect]
     Indication: DRUG USE FOR UNKNOWN INDICATION
     Dosage: 75 MG, A HALF CAPSULE TWICE DAILY
     Route: 048
     Dates: start: 20091206, end: 20091208

REACTIONS (3)
  - CONVULSION [None]
  - DROOLING [None]
  - TARDIVE DYSKINESIA [None]
